FAERS Safety Report 4724272-9 (Version None)
Quarter: 2005Q3

REPORT INFORMATION
  Report Type: 
  Country: None (occurrence: None)
  Receive Date: 20050720
  Receipt Date: 20050720
  Transmission Date: 20060218
  Serious: Yes (Other)
  Sender: FDA-Public Use
  Company Number: None

PATIENT
  Sex: Male
  Weight: 63.5036 kg

DRUGS (6)
  1. WELLBUTRIN SR [Suspect]
     Indication: ANXIETY
     Dosage: 150 MG PO BID
     Route: 048
     Dates: start: 20050401
  2. WELLBUTRIN SR [Suspect]
     Indication: DEPRESSION
     Dosage: 150 MG PO BID
     Route: 048
     Dates: start: 20050401
  3. WELLBUTRIN SR [Suspect]
     Indication: PANIC ATTACK
     Dosage: 150 MG PO BID
     Route: 048
     Dates: start: 20050401
  4. LIPITOR [Concomitant]
  5. ULTRAM [Concomitant]
  6. LORAZEPAM [Concomitant]

REACTIONS (6)
  - CONDITION AGGRAVATED [None]
  - DEPRESSION [None]
  - DRUG EFFECT DECREASED [None]
  - FATIGUE [None]
  - SOCIAL AVOIDANT BEHAVIOUR [None]
  - THERAPEUTIC RESPONSE UNEXPECTED WITH DRUG SUBSTITUTION [None]
